FAERS Safety Report 20699683 (Version 1)
Quarter: 2022Q2

REPORT INFORMATION
  Report Type: Spontaneous
  Country: US (occurrence: None)
  Receive Date: 20220411
  Receipt Date: 20220411
  Transmission Date: 20220721
  Serious: Yes (Hospitalization)
  Sender: FDA-Public Use
  Company Number: None

PATIENT
  Sex: Female

DRUGS (3)
  1. SILDENAFIL [Suspect]
     Active Substance: SILDENAFIL
     Indication: Cor pulmonale
     Route: 048
     Dates: start: 20201209
  2. FUROSEMIDE [Concomitant]
  3. SODIUM CHLOR NEB [Concomitant]

REACTIONS (3)
  - Bronchitis [None]
  - Abdominal discomfort [None]
  - Pain [None]
